FAERS Safety Report 11832699 (Version 1)
Quarter: 2015Q4

REPORT INFORMATION
  Report Type: Spontaneous
  Country: IT (occurrence: IT)
  Receive Date: 20151214
  Receipt Date: 20151214
  Transmission Date: 20160305
  Serious: Yes (Other)
  Sender: FDA-Public Use
  Company Number: IT-ELI_LILLY_AND_COMPANY-IT201511002564

PATIENT
  Age: 47 Year
  Sex: Female
  Weight: 71 kg

DRUGS (3)
  1. CISPLATIN. [Suspect]
     Active Substance: CISPLATIN
     Indication: LUNG ADENOCARCINOMA STAGE IV
     Dosage: 130 MG, CYCLICAL
     Route: 042
     Dates: start: 20150121, end: 20150424
  2. REAPTAN [Concomitant]
     Active Substance: AMLODIPINE BESYLATE
     Dosage: UNK, UNKNOWN
     Route: 065
  3. ALIMTA [Suspect]
     Active Substance: PEMETREXED DISODIUM
     Indication: LUNG ADENOCARCINOMA STAGE IV
     Dosage: 860 MG, CYCLICAL
     Route: 042
     Dates: start: 20150121

REACTIONS (5)
  - Muscle spasms [Recovering/Resolving]
  - Conjunctivitis [Recovering/Resolving]
  - Thrombocytosis [Recovering/Resolving]
  - Night sweats [Recovering/Resolving]
  - Neutropenia [Recovering/Resolving]

NARRATIVE: CASE EVENT DATE: 20150206
